FAERS Safety Report 8295430-4 (Version None)
Quarter: 2012Q2

REPORT INFORMATION
  Report Type: 
  Country: None (occurrence: None)
  Receive Date: 20120418
  Receipt Date: 20120410
  Transmission Date: 20120825
  Serious: Yes (Other)
  Sender: FDA-Public Use
  Company Number: US-ROCHE-1043940

PATIENT
  Sex: Female

DRUGS (1)
  1. BONIVA [Suspect]
     Indication: OSTEOPOROSIS

REACTIONS (5)
  - OSTEOPOROSIS [None]
  - MEMORY IMPAIRMENT [None]
  - DYSPHAGIA [None]
  - SCOLIOSIS [None]
  - FALL [None]
